FAERS Safety Report 5596295-1 (Version None)
Quarter: 2008Q1

REPORT INFORMATION
  Report Type: 
  Country: None (occurrence: None)
  Receive Date: 20080118
  Receipt Date: 20080110
  Transmission Date: 20080703
  Serious: Yes (Hospitalization)
  Sender: FDA-Public Use
  Company Number: GB-ABBOTT-07P-167-0425179-00

PATIENT
  Sex: Female
  Weight: 54.5 kg

DRUGS (4)
  1. HUMIRA [Suspect]
     Indication: RHEUMATOID ARTHRITIS
     Route: 058
     Dates: start: 20061008, end: 20070227
  2. METHOTREXATE [Concomitant]
     Indication: RHEUMATOID ARTHRITIS
     Route: 048
  3. FOLIC ACID [Concomitant]
     Indication: DRUG USE FOR UNKNOWN INDICATION
     Route: 048
  4. CODYDRAMOL [Concomitant]
     Indication: DRUG USE FOR UNKNOWN INDICATION
     Route: 048

REACTIONS (11)
  - ARTHROPATHY [None]
  - BONE DISORDER [None]
  - EYE INFLAMMATION [None]
  - EYE PAIN [None]
  - INFLAMMATION [None]
  - LOCALISED OEDEMA [None]
  - MYOSITIS [None]
  - OEDEMA [None]
  - PAIN IN EXTREMITY [None]
  - SCLERITIS [None]
  - TENDONITIS [None]
